FAERS Safety Report 7744954-4 (Version None)
Quarter: 2011Q3

REPORT INFORMATION
  Report Type: 
  Country: None (occurrence: None)
  Receive Date: 20110913
  Receipt Date: 20110831
  Transmission Date: 20111222
  Serious: No
  Sender: FDA-Public Use
  Company Number: US-BIOGENIDEC-2011BI021949

PATIENT
  Age: 44 Year
  Sex: Female

DRUGS (3)
  1. NUVIGIL [Concomitant]
     Indication: FATIGUE
  2. COPAXONE [Concomitant]
     Indication: MULTIPLE SCLEROSIS
  3. TYSABRI [Suspect]
     Indication: MULTIPLE SCLEROSIS
     Route: 042
     Dates: start: 20110525

REACTIONS (11)
  - SPEECH DISORDER [None]
  - FEELING ABNORMAL [None]
  - HEPATIC ENZYME INCREASED [None]
  - HEADACHE [None]
  - FATIGUE [None]
  - MUSCLE SPASMS [None]
  - GAIT DISTURBANCE [None]
  - BALANCE DISORDER [None]
  - LOSS OF CONSCIOUSNESS [None]
  - RED BLOOD CELL MORPHOLOGY ABNORMAL [None]
  - WHITE BLOOD CELL COUNT DECREASED [None]
